FAERS Safety Report 22602636 (Version 1)
Quarter: 2023Q2

REPORT INFORMATION
  Report Type: Report from Study
  Country: US (occurrence: US)
  Receive Date: 20230615
  Receipt Date: 20230615
  Transmission Date: 20230722
  Serious: Yes (Hospitalization, Other)
  Sender: FDA-Public Use
  Company Number: US-ABBVIE-4332180

PATIENT
  Age: 77 Year
  Sex: Male
  Weight: 88 kg

DRUGS (2)
  1. IMBRUVICA [Suspect]
     Active Substance: IBRUTINIB
     Indication: Chronic lymphocytic leukaemia
     Dosage: LAST ADMIN DATE 2020
     Route: 048
     Dates: start: 202006
  2. IMBRUVICA [Suspect]
     Active Substance: IBRUTINIB
     Indication: Chronic lymphocytic leukaemia
     Dosage: FIRST ADMIN DATE 2020
     Route: 048

REACTIONS (7)
  - Chronic lymphocytic leukaemia [Unknown]
  - Cellulitis [Recovered/Resolved]
  - Fatigue [Unknown]
  - Cellulitis [Recovered/Resolved]
  - Clumsiness [Unknown]
  - Chills [Unknown]
  - Sepsis [Unknown]

NARRATIVE: CASE EVENT DATE: 20210517
